FAERS Safety Report 26136440 (Version 1)
Quarter: 2025Q4

REPORT INFORMATION
  Report Type: Spontaneous
  Country: US (occurrence: US)
  Receive Date: 20251209
  Receipt Date: 20251209
  Transmission Date: 20260117
  Serious: Yes (Hospitalization)
  Sender: DR REDDYS
  Company Number: None

PATIENT
  Age: 66 Year
  Sex: Female

DRUGS (2)
  1. CLOZAPINE [Suspect]
     Active Substance: CLOZAPINE
     Indication: Schizoaffective disorder
  2. CLOZAPINE [Suspect]
     Active Substance: CLOZAPINE
     Dosage: TAPER

REACTIONS (4)
  - Tardive dyskinesia [Recovering/Resolving]
  - Dyspnoea [Recovering/Resolving]
  - Withdrawal syndrome [Recovering/Resolving]
  - Paradoxical drug reaction [Recovering/Resolving]
